FAERS Safety Report 6235381-X (Version None)
Quarter: 2009Q2

REPORT INFORMATION
  Report Type: 
  Country: None (occurrence: None)
  Receive Date: 20090618
  Receipt Date: 20080630
  Transmission Date: 20091009
  Serious: No
  Sender: FDA-Public Use
  Company Number: US-ASTRAZENECA-2008UW13134

PATIENT
  Age: 18 Year
  Sex: Female
  Weight: 45.4 kg

DRUGS (8)
  1. ENTOCORT EC [Suspect]
     Indication: COLITIS ULCERATIVE
     Dosage: 3 MG 100 COUNT BOTTLE
     Route: 048
     Dates: start: 20080627
  2. ENTOCORT EC [Suspect]
     Indication: OEDEMA
     Dosage: 3 MG 100 COUNT BOTTLE
     Route: 048
     Dates: start: 20080627
  3. ENTOCORT EC [Suspect]
     Indication: GASTRIC HYPERMOTILITY
     Dosage: 3 MG 100 COUNT BOTTLE
     Route: 048
     Dates: start: 20080627
  4. GENERIC CIPRO [Suspect]
     Dates: start: 20080627, end: 20080629
  5. GENERIC FLAGYL [Concomitant]
     Dates: start: 20080627
  6. TINCTURE OF OPIUM [Concomitant]
  7. CODEINE [Concomitant]
  8. LOMOTIL [Concomitant]

REACTIONS (4)
  - OEDEMA PERIPHERAL [None]
  - PHARYNGEAL OEDEMA [None]
  - SWELLING FACE [None]
  - SWOLLEN TONGUE [None]
